FAERS Safety Report 12673926 (Version 3)
Quarter: 2017Q2

REPORT INFORMATION
  Report Type: Spontaneous
  Country: JP (occurrence: JP)
  Receive Date: 20160822
  Receipt Date: 20170428
  Transmission Date: 20170830
  Serious: Yes (Hospitalization)
  Sender: FDA-Public Use
  Company Number: JP-ELI_LILLY_AND_COMPANY-JP201608007906

PATIENT
  Age: 81 Year
  Sex: Male

DRUGS (2)
  1. ZALUTIA [Suspect]
     Active Substance: TADALAFIL
     Indication: BENIGN PROSTATIC HYPERPLASIA
     Dosage: 5 MG, QD
     Route: 048
     Dates: start: 20160324, end: 20160728
  2. BETANIS [Concomitant]
     Active Substance: MIRABEGRON
     Indication: BENIGN PROSTATIC HYPERPLASIA
     Dosage: UNK
     Route: 065

REACTIONS (3)
  - Jaundice cholestatic [Recovered/Resolved]
  - Urinary tract infection [Recovered/Resolved]
  - Pneumonia [Recovered/Resolved]

NARRATIVE: CASE EVENT DATE: 201607
